FAERS Safety Report 13953225 (Version 1)
Quarter: 2017Q3

REPORT INFORMATION
  Report Type: Spontaneous
  Country: NO (occurrence: NO)
  Receive Date: 20170911
  Receipt Date: 20170911
  Transmission Date: 20171128
  Serious: Yes (Other)
  Sender: FDA-Public Use
  Company Number: NO-RANBAXY-2015R1-92538

PATIENT
  Age: 25 Year
  Sex: Female
  Weight: 56 kg

DRUGS (10)
  1. METOCLOPRAMIDE. [Suspect]
     Active Substance: METOCLOPRAMIDE
     Dosage: 10 MG, QD
     Route: 048
  2. METOCLOPRAMIDE. [Suspect]
     Active Substance: METOCLOPRAMIDE
     Dosage: 0.5 DF, SINGLE
     Route: 048
  3. DIPHENHYDRAMINE [Concomitant]
     Indication: NAUSEA
  4. DIPHENHYDRAMINE [Concomitant]
     Indication: VERTIGO
     Dosage: 25 MG, SINGLE
     Route: 030
  5. METOCLOPRAMIDE. [Suspect]
     Active Substance: METOCLOPRAMIDE
     Indication: VOMITING
  6. METOCLOPRAMIDE. [Suspect]
     Active Substance: METOCLOPRAMIDE
     Indication: NAUSEA
  7. METOCLOPRAMIDE. [Suspect]
     Active Substance: METOCLOPRAMIDE
     Indication: VERTIGO
     Dosage: 10 MG, SINGLE
     Route: 030
  8. DIPHENHYDRAMINE [Concomitant]
     Indication: VOMITING
  9. METOCLOPRAMIDE. [Suspect]
     Active Substance: METOCLOPRAMIDE
     Indication: GASTROENTERITIS
     Dosage: 0.5 DF, SINGLE
     Route: 048
  10. METOCLOPRAMIDE. [Suspect]
     Active Substance: METOCLOPRAMIDE
     Dosage: 5 MG, BID
     Route: 048

REACTIONS (28)
  - Heart rate irregular [Recovered/Resolved]
  - Hyperhidrosis [Recovered/Resolved]
  - Anxiety [Recovered/Resolved]
  - Depression [Recovered/Resolved]
  - Dyskinesia [Recovering/Resolving]
  - Decreased appetite [Recovered/Resolved]
  - Suicidal ideation [Recovered/Resolved]
  - Somatic symptom disorder [Recovered/Resolved]
  - Dysphagia [Recovered/Resolved]
  - Ocular icterus [Recovered/Resolved]
  - Fatigue [Recovered/Resolved]
  - Panic attack [Recovered/Resolved]
  - Headache [Recovered/Resolved]
  - Urinary incontinence [Recovered/Resolved]
  - Muscle spasms [Recovering/Resolving]
  - Yellow skin [Recovered/Resolved]
  - Dizziness [Recovered/Resolved]
  - Confusional state [Recovering/Resolving]
  - Dysarthria [Recovered/Resolved]
  - Nightmare [Recovered/Resolved]
  - Reduced facial expression [Recovered/Resolved]
  - Tongue movement disturbance [Recovered/Resolved]
  - Asthenia [Recovered/Resolved]
  - Tardive dyskinesia [Recovered/Resolved]
  - Vomiting [Recovered/Resolved]
  - Dyspnoea [Recovered/Resolved]
  - Nausea [Recovered/Resolved]
  - Muscular weakness [Recovered/Resolved]
